FAERS Safety Report 25090215 (Version 1)
Quarter: 2025Q1

REPORT INFORMATION
  Report Type: Spontaneous
  Country: JP (occurrence: JP)
  Receive Date: 20250318
  Receipt Date: 20250318
  Transmission Date: 20250409
  Serious: Yes (Hospitalization, Other)
  Sender: TAKEDA
  Company Number: JP-TEVA-VS-3163348

PATIENT
  Age: 32 Year
  Sex: Female

DRUGS (5)
  1. PREDNISOLONE [Suspect]
     Active Substance: PREDNISOLONE
     Indication: Colitis ulcerative
     Dosage: 30 MILLIGRAM, QD
  2. PREDNISOLONE [Suspect]
     Active Substance: PREDNISOLONE
     Dosage: 30 MILLIGRAM, QD
  3. MESALAMINE [Suspect]
     Active Substance: MESALAMINE
     Indication: Colitis ulcerative
     Dosage: 4000 MILLIGRAM, QD
  4. GOLIMUMAB [Suspect]
     Active Substance: GOLIMUMAB
     Indication: Colitis ulcerative
     Dosage: UNK UNK, Q4WEEKS 100 MG/BODY
  5. INFLIXIMAB [Suspect]
     Active Substance: INFLIXIMAB
     Indication: Colitis ulcerative

REACTIONS (6)
  - Dyspnoea [Unknown]
  - Drug ineffective [Unknown]
  - Flushing [Unknown]
  - Infusion related reaction [Unknown]
  - Maternal exposure during pregnancy [Unknown]
  - Normal newborn [Unknown]
